FAERS Safety Report 25987354 (Version 1)
Quarter: 2025Q4

REPORT INFORMATION
  Report Type: Spontaneous
  Country: EU (occurrence: EU)
  Receive Date: 20251103
  Receipt Date: 20251103
  Transmission Date: 20260117
  Serious: Yes (Other)
  Sender: ALKEM
  Company Number: EU-ALKEM LABORATORIES LIMITED-DE-ALKEM-2025-08124

PATIENT
  Age: 6 Year
  Sex: Male

DRUGS (2)
  1. IBUPROFEN [Suspect]
     Active Substance: IBUPROFEN
     Indication: Pyrexia
     Dosage: 200 MILLIGRAM (SYRUP)
     Route: 048
  2. IBUPROFEN [Suspect]
     Active Substance: IBUPROFEN
     Indication: Respiratory tract infection
     Dosage: 250 MILLIGRAM
     Route: 048

REACTIONS (5)
  - Angioedema [Unknown]
  - Lip swelling [Unknown]
  - Hypersensitivity [Unknown]
  - Urticaria [Unknown]
  - Drug hypersensitivity [Unknown]
